FAERS Safety Report 5507434-2 (Version None)
Quarter: 2007Q4

REPORT INFORMATION
  Report Type: 
  Country: None (occurrence: None)
  Receive Date: 20071024
  Receipt Date: 20061212
  Transmission Date: 20080405
  Serious: Yes (Other)
  Sender: FDA-Public Use
  Company Number: US-JNJFOC-20061203204

PATIENT
  Age: 43 Year
  Sex: Male
  Weight: 71.6683 kg

DRUGS (5)
  1. FLEXERIL [Suspect]
     Indication: MUSCLE SPASMS
     Dosage: 5 MG, 1 IN 1 DAY, ORAL ; 5 MG, 2 IN 1 DAY, ORAL
     Route: 048
     Dates: start: 20061209, end: 20061210
  2. FLEXERIL [Suspect]
     Indication: MUSCLE SPASMS
     Dosage: 5 MG, 1 IN 1 DAY, ORAL ; 5 MG, 2 IN 1 DAY, ORAL
     Route: 048
     Dates: start: 20061208
  3. NAPROSYN [Suspect]
     Indication: MUSCLE SPASMS
     Dosage: ORAL
     Route: 048
     Dates: start: 20061201
  4. TEGRETOL [Concomitant]
  5. PHENOBARBITAL TAB [Concomitant]

REACTIONS (1)
  - PSYCHOMOTOR SEIZURES [None]
